FAERS Safety Report 10073638 (Version 1)
Quarter: 2014Q2

REPORT INFORMATION
  Report Type: Report from Study
  Country: BG (occurrence: BG)
  Receive Date: 20140411
  Receipt Date: 20140411
  Transmission Date: 20141212
  Serious: Yes (Death, Other)
  Sender: FDA-Public Use
  Company Number: BG-BAYER-2013-130865

PATIENT
  Age: 61 Year
  Sex: Male

DRUGS (2)
  1. NEXAVAR [Suspect]
     Indication: RENAL CELL CARCINOMA
     Dosage: 400 MG, BID
     Route: 048
     Dates: start: 20120711, end: 201207
  2. NEXAVAR [Suspect]
     Indication: RENAL CELL CARCINOMA
     Dosage: 400 MG, REDUCED TO 2 TABLETS PER DAY
     Dates: start: 201207, end: 20120726

REACTIONS (6)
  - Rash pruritic [None]
  - Face oedema [None]
  - Eyelid oedema [None]
  - Rash [None]
  - Dyspnoea [None]
  - Renal cancer [Fatal]
